FAERS Safety Report 13245277 (Version 1)
Quarter: 2017Q1

REPORT INFORMATION
  Report Type: Report from Study
  Country: MX (occurrence: MX)
  Receive Date: 20170217
  Receipt Date: 20170217
  Transmission Date: 20170428
  Serious: Yes (Hospitalization, Other)
  Sender: FDA-Public Use
  Company Number: MX-UCBSA-2017005959

PATIENT
  Sex: Female
  Weight: 58 kg

DRUGS (6)
  1. LEVETIRACETAM. [Suspect]
     Active Substance: LEVETIRACETAM
     Indication: PRODUCT USED FOR UNKNOWN INDICATION
     Dosage: UNK
     Dates: start: 201606
  2. LEVETIRACETAM. [Suspect]
     Active Substance: LEVETIRACETAM
     Dosage: 20 ML, ONCE DAILY (QD)
     Route: 048
     Dates: start: 2013, end: 201606
  3. ETANERCEPT [Concomitant]
     Active Substance: ETANERCEPT
     Indication: SPONDYLITIS
     Dosage: 50 MG EVERY 8 DAYS
     Route: 058
     Dates: start: 2006
  4. LEVETIRACETAM. [Suspect]
     Active Substance: LEVETIRACETAM
     Indication: COMPLEX PARTIAL SEIZURES
     Dosage: 7.5 ML, 2X/DAY (BID), ORAL SOLUTION
     Route: 048
     Dates: start: 2007
  5. LEVETIRACETAM. [Suspect]
     Active Substance: LEVETIRACETAM
     Dosage: 5 ML, 2X/DAY (BID)
     Route: 048
     Dates: start: 2013
  6. METHOTREXATE. [Concomitant]
     Active Substance: METHOTREXATE
     Indication: SPONDYLITIS
     Dosage: 35 MG EVERY 8 DAYS
     Dates: start: 2006

REACTIONS (3)
  - Off label use [Unknown]
  - Depressed mood [Recovered/Resolved]
  - Status epilepticus [Recovered/Resolved]

NARRATIVE: CASE EVENT DATE: 2013
